FAERS Safety Report 21776375 (Version 1)
Quarter: 2022Q4

REPORT INFORMATION
  Report Type: Spontaneous
  Country: US (occurrence: US)
  Receive Date: 20221226
  Receipt Date: 20221226
  Transmission Date: 20230113
  Serious: No
  Sender: FDA-Public Use
  Company Number: US-TAKEDA-2022TUS096588

PATIENT
  Age: 3 Year

DRUGS (1)
  1. MARIBAVIR [Suspect]
     Active Substance: MARIBAVIR
     Indication: Prophylaxis
     Dosage: 200 MILLIGRAM, BID
     Route: 065

REACTIONS (4)
  - Rash [Unknown]
  - Gastrointestinal stoma complication [Unknown]
  - Drug interaction [None]
  - Off label use [Unknown]
